FAERS Safety Report 23130146 (Version 1)
Quarter: 2023Q4

REPORT INFORMATION
  Report Type: Other
  Country: CN (occurrence: None)
  Receive Date: 20231031
  Receipt Date: 20231031
  Transmission Date: 20240109
  Serious: Yes (Other)
  Sender: FDA-Public Use
  Company Number: CN-ROCHE-3445941

PATIENT

DRUGS (12)
  1. BEVACIZUMAB [Suspect]
     Active Substance: BEVACIZUMAB
     Indication: Lung neoplasm malignant
     Dosage: 200 - 1200 MG
     Route: 041
  2. BEVACIZUMAB [Suspect]
     Active Substance: BEVACIZUMAB
     Indication: Colorectal cancer
  3. BEVACIZUMAB [Suspect]
     Active Substance: BEVACIZUMAB
     Indication: Glioma
  4. BEVACIZUMAB [Suspect]
     Active Substance: BEVACIZUMAB
     Indication: Hepatocellular carcinoma
  5. BEVACIZUMAB [Suspect]
     Active Substance: BEVACIZUMAB
     Indication: Malignant melanoma
  6. BEVACIZUMAB [Suspect]
     Active Substance: BEVACIZUMAB
     Indication: Ovarian cancer
  7. BEVACIZUMAB [Suspect]
     Active Substance: BEVACIZUMAB
     Indication: Brain neoplasm
  8. BEVACIZUMAB [Suspect]
     Active Substance: BEVACIZUMAB
     Indication: Brain oedema
  9. BEVACIZUMAB [Suspect]
     Active Substance: BEVACIZUMAB
     Indication: Breast cancer
  10. BEVACIZUMAB [Suspect]
     Active Substance: BEVACIZUMAB
     Indication: Cervix carcinoma
  11. BEVACIZUMAB [Suspect]
     Active Substance: BEVACIZUMAB
     Indication: Pancreatic carcinoma
  12. BEVACIZUMAB [Suspect]
     Active Substance: BEVACIZUMAB
     Indication: Endometrial cancer

REACTIONS (48)
  - Thrombocytopenia [Unknown]
  - Myelosuppression [Unknown]
  - Hypertension [Unknown]
  - Hypokalaemia [Unknown]
  - Nausea [Unknown]
  - Vomiting [Unknown]
  - Abdominal pain [Unknown]
  - Diarrhoea [Unknown]
  - Constipation [Unknown]
  - Abdominal distension [Unknown]
  - Proteinuria [Unknown]
  - Hyperglycaemia [Unknown]
  - Sinus tachycardia [Unknown]
  - Intestinal obstruction [Unknown]
  - Intestinal perforation [Unknown]
  - Renal impairment [Unknown]
  - Cerebral infarction [Unknown]
  - Pulmonary hypertension [Unknown]
  - Off label use [Unknown]
  - Off label use [Unknown]
  - Anaemia [Unknown]
  - Leukopenia [Unknown]
  - Neutropenia [Unknown]
  - Hypocalcaemia [Unknown]
  - Hyponatraemia [Unknown]
  - Hypertriglyceridaemia [Unknown]
  - Hypercholesterolaemia [Unknown]
  - Electrolyte imbalance [Unknown]
  - Hiccups [Unknown]
  - Decreased appetite [Unknown]
  - Hypertransaminasaemia [Unknown]
  - Hepatic function abnormal [Unknown]
  - Haemorrhage [Unknown]
  - Pyrexia [Unknown]
  - Asthenia [Unknown]
  - Oedema [Unknown]
  - Hyperuricaemia [Unknown]
  - Sinus bradycardia [Unknown]
  - Arrhythmia [Unknown]
  - Mouth ulceration [Unknown]
  - Dysphagia [Unknown]
  - Toothache [Unknown]
  - Oropharyngeal pain [Unknown]
  - Neurotoxicity [Unknown]
  - Myalgia [Unknown]
  - Arthralgia [Unknown]
  - Thrombosis [Unknown]
  - Skin reaction [Unknown]
